FAERS Safety Report 4716644-3 (Version None)
Quarter: 2005Q3

REPORT INFORMATION
  Report Type: 
  Country: None (occurrence: None)
  Receive Date: 20050714
  Receipt Date: 20050711
  Transmission Date: 20060218
  Serious: No
  Sender: FDA-Public Use
  Company Number: A50033002

PATIENT
  Sex: Male

DRUGS (1)
  1. FENTANYL [Suspect]
     Dosage: INTRAVENOUS
     Route: 042

REACTIONS (4)
  - BRAIN DEATH [None]
  - CARDIO-RESPIRATORY ARREST [None]
  - INCORRECT DOSE ADMINISTERED [None]
  - MEDICATION ERROR [None]
